FAERS Safety Report 6670910-3 (Version None)
Quarter: 2010Q2

REPORT INFORMATION
  Report Type: 
  Country: None (occurrence: None)
  Receive Date: 20100407
  Receipt Date: 20100401
  Transmission Date: 20101027
  Serious: Yes (Disabling)
  Sender: FDA-Public Use
  Company Number: FR-ASTRAZENECA-2009SE27566

PATIENT
  Age: 52 Year
  Sex: Male

DRUGS (1)
  1. CRESTOR [Suspect]
     Indication: DYSLIPIDAEMIA
     Route: 048
     Dates: start: 20090525, end: 20091103

REACTIONS (1)
  - MUSCLE STRAIN [None]
